FAERS Safety Report 22366139 (Version 1)
Quarter: 2023Q2

REPORT INFORMATION
  Report Type: Spontaneous
  Country: US (occurrence: None)
  Receive Date: 20230524
  Receipt Date: 20230524
  Transmission Date: 20230722
  Serious: No
  Sender: FDA-Public Use
  Company Number: None

PATIENT
  Age: 77 Year
  Sex: Male

DRUGS (1)
  1. BOSULIF [Suspect]
     Active Substance: BOSUTINIB MONOHYDRATE
     Dosage: 300MG DAILY ORAL?
     Route: 048
     Dates: start: 20200916

REACTIONS (3)
  - Pyrexia [None]
  - Oxygen saturation decreased [None]
  - Therapy cessation [None]

NARRATIVE: CASE EVENT DATE: 20230523
